FAERS Safety Report 16365709 (Version 1)
Quarter: 2019Q2

REPORT INFORMATION
  Report Type: Spontaneous
  Country: DE (occurrence: DE)
  Receive Date: 20190529
  Receipt Date: 20190529
  Transmission Date: 20190711
  Serious: Yes (Other)
  Sender: FDA-Public Use
  Company Number: DE-SUN PHARMACEUTICAL INDUSTRIES LTD-2019RR-208998

PATIENT
  Age: 38 Year
  Sex: Female
  Weight: 63 kg

DRUGS (1)
  1. CIPROFLOXACIN. [Suspect]
     Active Substance: CIPROFLOXACIN
     Indication: BACTERIAL INFECTION
     Dosage: 250 MG 2 X TAGL.
     Route: 048
     Dates: start: 20140205, end: 20140207

REACTIONS (36)
  - Gastric ulcer [Unknown]
  - Cyst [Unknown]
  - Intervertebral disc protrusion [Unknown]
  - Arthropathy [Unknown]
  - Abdominal discomfort [Not Recovered/Not Resolved]
  - Joint injury [Unknown]
  - Muscle tightness [Unknown]
  - Tendon injury [Unknown]
  - Tendon pain [Not Recovered/Not Resolved]
  - Ligament rupture [Unknown]
  - Tendon disorder [Unknown]
  - Arthropathy [Unknown]
  - Abdominal discomfort [Unknown]
  - Food allergy [Unknown]
  - Tendon rupture [Not Recovered/Not Resolved]
  - Impaired work ability [Not Recovered/Not Resolved]
  - Urinary tract infection [Unknown]
  - Limb discomfort [Unknown]
  - Product physical issue [Unknown]
  - Tendon discomfort [Unknown]
  - Myalgia [Not Recovered/Not Resolved]
  - Intervertebral disc protrusion [Unknown]
  - Tendon pain [Unknown]
  - Apathy [Not Recovered/Not Resolved]
  - Pain in extremity [Not Recovered/Not Resolved]
  - Musculoskeletal disorder [Unknown]
  - Rotator cuff syndrome [Unknown]
  - Ligament disorder [Not Recovered/Not Resolved]
  - Adverse reaction [Unknown]
  - Peroneal nerve injury [Unknown]
  - Histamine intolerance [Unknown]
  - Asthenia [Not Recovered/Not Resolved]
  - Limb discomfort [Unknown]
  - Malaise [Not Recovered/Not Resolved]
  - Loss of personal independence in daily activities [Not Recovered/Not Resolved]
  - Joint instability [Not Recovered/Not Resolved]

NARRATIVE: CASE EVENT DATE: 2014
